FAERS Safety Report 9485316 (Version 2)
Quarter: 2013Q3

REPORT INFORMATION
  Report Type: Report from Study
  Country: US (occurrence: US)
  Receive Date: 20130828
  Receipt Date: 20130917
  Transmission Date: 20140515
  Serious: Yes (Other)
  Sender: FDA-Public Use
  Company Number: US-US-EMD SERONO, INC.-7233644

PATIENT
  Sex: Female

DRUGS (1)
  1. REBIF [Suspect]
     Indication: MULTIPLE SCLEROSIS
     Route: 058
     Dates: start: 20091014, end: 201306

REACTIONS (3)
  - Hepatic cancer [Not Recovered/Not Resolved]
  - Metastasis [Not Recovered/Not Resolved]
  - Gallbladder disorder [Unknown]
